FAERS Safety Report 22293425 (Version 7)
Quarter: 2024Q2

REPORT INFORMATION
  Report Type: Other
  Country: CA (occurrence: None)
  Receive Date: 20230508
  Receipt Date: 20240523
  Transmission Date: 20240716
  Serious: Yes (Hospitalization)
  Sender: FDA-Public Use
  Company Number: CA-ROCHE-3341285

PATIENT
  Sex: Male

DRUGS (3)
  1. OCREVUS [Suspect]
     Active Substance: OCRELIZUMAB
     Indication: Relapsing-remitting multiple sclerosis
     Dosage: 300 MG AT DAY 0 AND 14, THEN 600 MG EVERY 6 MONTH
     Route: 042
     Dates: start: 20211020
  2. FLECAINIDE [Concomitant]
     Active Substance: FLECAINIDE
  3. METOPROLOL [Concomitant]
     Active Substance: METOPROLOL

REACTIONS (15)
  - Suicide attempt [Unknown]
  - Pneumonia [Recovered/Resolved]
  - Pain in extremity [Not Recovered/Not Resolved]
  - Amnesia [Not Recovered/Not Resolved]
  - Balance disorder [Not Recovered/Not Resolved]
  - Fall [Unknown]
  - Pruritus [Recovered/Resolved]
  - Agitation [Unknown]
  - Fatigue [Unknown]
  - Speech disorder [Not Recovered/Not Resolved]
  - Impatience [Unknown]
  - Illness [Unknown]
  - Loss of consciousness [Unknown]
  - Pain [Unknown]
  - Blood immunoglobulin G decreased [Not Recovered/Not Resolved]
